FAERS Safety Report 4391921-7 (Version None)
Quarter: 2004Q3

REPORT INFORMATION
  Report Type: 
  Country: None (occurrence: None)
  Receive Date: 20040701
  Receipt Date: 20040615
  Transmission Date: 20050211
  Serious: Yes (Other)
  Sender: FDA-Public Use
  Company Number: USA040464481

PATIENT
  Age: 31 Year
  Sex: Female
  Weight: 73 kg

DRUGS (6)
  1. HUMALOG [Suspect]
     Indication: DIABETES MELLITUS INSULIN-DEPENDENT
     Dates: start: 19990101
  2. VASOTEC [Concomitant]
  3. TEGRETOL [Concomitant]
  4. VALIUM [Concomitant]
  5. OXYCONTIN [Concomitant]
  6. LORTAB [Concomitant]

REACTIONS (8)
  - BLOOD GLUCOSE FLUCTUATION [None]
  - DEVICE FAILURE [None]
  - DIFFICULTY IN WALKING [None]
  - GLYCOSYLATED HAEMOGLOBIN INCREASED [None]
  - GRAND MAL CONVULSION [None]
  - INJECTION SITE HAEMORRHAGE [None]
  - RENAL DISORDER [None]
  - VEIN DISORDER [None]
